FAERS Safety Report 10350930 (Version 2)
Quarter: 2014Q3

REPORT INFORMATION
  Report Type: Spontaneous
  Country: JP (occurrence: JP)
  Receive Date: 20140730
  Receipt Date: 20140812
  Transmission Date: 20150326
  Serious: Yes (Hospitalization)
  Sender: FDA-Public Use
  Company Number: PHHY2014JP092398

PATIENT
  Age: 77 Year
  Sex: Male

DRUGS (2)
  1. ONBREZ [Suspect]
     Active Substance: INDACATEROL
     Indication: CHRONIC OBSTRUCTIVE PULMONARY DISEASE
     Dosage: 150 UG, DAILY
     Route: 048
     Dates: start: 20140704, end: 20140705
  2. ONBREZ [Suspect]
     Active Substance: INDACATEROL
     Dosage: 150 UG, DAILY
     Route: 055

REACTIONS (2)
  - Tuberculosis [Unknown]
  - Incorrect route of drug administration [Recovered/Resolved]

NARRATIVE: CASE EVENT DATE: 20140704
